FAERS Safety Report 26052509 (Version 1)
Quarter: 2025Q4

REPORT INFORMATION
  Report Type: Spontaneous
  Country: DZ (occurrence: DZ)
  Receive Date: 20251117
  Receipt Date: 20251117
  Transmission Date: 20260117
  Serious: Yes (Other)
  Sender: AMGEN
  Company Number: DZ-AMGEN-DZASP2025224770

PATIENT

DRUGS (1)
  1. ETANERCEPT [Suspect]
     Active Substance: ETANERCEPT
     Indication: Juvenile idiopathic arthritis
     Dosage: UNK
     Route: 065

REACTIONS (15)
  - Severe acute respiratory syndrome [Unknown]
  - Escherichia infection [Unknown]
  - Staphylococcal infection [Unknown]
  - Klebsiella infection [Unknown]
  - Varicella zoster virus infection [Unknown]
  - Herpes zoster [Unknown]
  - Candida infection [Unknown]
  - Gastrointestinal infection [Unknown]
  - Skin infection [Unknown]
  - Respiratory tract infection [Unknown]
  - Urinary tract infection [Unknown]
  - Genital infection [Unknown]
  - Ear infection [Unknown]
  - Rhinitis [Unknown]
  - Pharyngitis [Unknown]
